FAERS Safety Report 9881369 (Version 2)
Quarter: 2014Q1

REPORT INFORMATION
  Report Type: Report from Study
  Country: US (occurrence: US)
  Receive Date: 20140207
  Receipt Date: 20140327
  Transmission Date: 20141002
  Serious: Yes (Death, Other)
  Sender: FDA-Public Use
  Company Number: PHEH2014US002577

PATIENT
  Age: 64 Year
  Sex: Female

DRUGS (3)
  1. SANDOSTATIN LAR DEPOT [Suspect]
     Dosage: 20 MG, UNK
  2. ZOMETA [Suspect]
     Dosage: 4 MG, UNK
  3. AFINITOR [Suspect]
     Dosage: 10 MG, QD
     Route: 048

REACTIONS (3)
  - Meningioma [Fatal]
  - Neuroendocrine carcinoma metastatic [Fatal]
  - Malignant neoplasm progression [Fatal]
